FAERS Safety Report 14374475 (Version 2)
Quarter: 2018Q1

REPORT INFORMATION
  Report Type: Spontaneous
  Country: US (occurrence: US)
  Receive Date: 20180111
  Receipt Date: 20180228
  Transmission Date: 20180509
  Serious: Yes (Other)
  Sender: FDA-Public Use
  Company Number: US-SUN PHARMACEUTICAL INDUSTRIES LTD-2017US-159646

PATIENT
  Age: 19 Year
  Sex: Female
  Weight: 63.5 kg

DRUGS (6)
  1. BUPIVACAINE. [Suspect]
     Active Substance: BUPIVACAINE
     Indication: SPINAL ANAESTHESIA
     Route: 065
  2. LIDOCAINE. [Suspect]
     Active Substance: LIDOCAINE
     Indication: SPINAL ANAESTHESIA
     Route: 065
  3. PHENYLEPHRINE [Suspect]
     Active Substance: PHENYLEPHRINE\PHENYLEPHRINE HYDROCHLORIDE
     Indication: SPINAL ANAESTHESIA
     Route: 065
  4. ADRENALINE [Suspect]
     Active Substance: EPINEPHRINE
     Indication: SPINAL ANAESTHESIA
     Dosage: UNK
     Route: 065
  5. MIDAZOLAM [Suspect]
     Active Substance: MIDAZOLAM HYDROCHLORIDE
     Indication: SPINAL ANAESTHESIA
     Dosage: UNK
     Route: 042
  6. FENTANYL. [Suspect]
     Active Substance: FENTANYL
     Indication: SPINAL ANAESTHESIA
     Route: 065

REACTIONS (7)
  - Live birth [Unknown]
  - Treatment failure [Unknown]
  - Blood pressure decreased [Unknown]
  - Exposure during pregnancy [Unknown]
  - Agitation [Unknown]
  - Anxiety [Unknown]
  - Medication error [Unknown]
